FAERS Safety Report 19701369 (Version 2)
Quarter: 2022Q3

REPORT INFORMATION
  Report Type: Report from Study
  Country: CN (occurrence: CN)
  Receive Date: 20210813
  Receipt Date: 20220718
  Transmission Date: 20221027
  Serious: Yes (Hospitalization, Other)
  Sender: FDA-Public Use
  Company Number: CN-NOVARTISPH-NVSC2021CN177643

PATIENT
  Age: 58 Year
  Sex: Female
  Weight: 57.5 kg

DRUGS (2)
  1. ZYKADIA [Suspect]
     Active Substance: CERITINIB
     Indication: Non-small cell lung cancer
     Dosage: 450 MG, QD
     Route: 048
     Dates: start: 20201113, end: 20210712
  2. ZYKADIA [Suspect]
     Active Substance: CERITINIB
     Indication: Lung neoplasm malignant
     Dosage: 450 MG, QD
     Route: 048
     Dates: start: 20201113, end: 20220130

REACTIONS (18)
  - Cerebral haemorrhage [Not Recovered/Not Resolved]
  - Hemiplegia [Unknown]
  - Brain neoplasm malignant [Unknown]
  - Malignant lymphoid neoplasm [Unknown]
  - Metastases to adrenals [Unknown]
  - Metastases to liver [Unknown]
  - Second primary malignancy [Unknown]
  - Bone cancer [Unknown]
  - Metastases to bone [Unknown]
  - Lung adenocarcinoma stage IV [Unknown]
  - Malignant neoplasm progression [Unknown]
  - Non-small cell lung cancer [Unknown]
  - Feeding disorder [Not Recovered/Not Resolved]
  - Speech disorder [Unknown]
  - Movement disorder [Unknown]
  - Neoplasm progression [Unknown]
  - Pneumonitis [Unknown]
  - Dysphagia [Unknown]

NARRATIVE: CASE EVENT DATE: 20210712
